FAERS Safety Report 6531214-2 (Version None)
Quarter: 2010Q1

REPORT INFORMATION
  Report Type: 
  Country: None (occurrence: None)
  Receive Date: 20100108
  Receipt Date: 20091231
  Transmission Date: 20100710
  Serious: Yes (Congenital Anomaly)
  Sender: FDA-Public Use
  Company Number: PHHY2009FR59851

PATIENT
  Sex: Male
  Weight: 3 kg

DRUGS (2)
  1. TEGRETOL [Suspect]
     Indication: EPILEPSY
     Dosage: MATERNAL DOSE WAS 1.5 TO 2 DF DAILY
     Route: 064
     Dates: end: 20060123
  2. ALEPSAL [Suspect]
     Indication: EPILEPSY
     Dosage: MATERNAL DOSE WAS 1.5 DF DAILY
     Route: 064

REACTIONS (3)
  - DRUG EXPOSURE DURING PREGNANCY [None]
  - MATERNAL DRUGS AFFECTING FOETUS [None]
  - RENAL DYSPLASIA [None]
